FAERS Safety Report 7980029-7 (Version None)
Quarter: 2011Q4

REPORT INFORMATION
  Report Type: 
  Country: None (occurrence: None)
  Receive Date: 20111214
  Receipt Date: 20111205
  Transmission Date: 20120403
  Serious: Yes (Other)
  Sender: FDA-Public Use
  Company Number: PHHY2011MX107821

PATIENT
  Sex: Female

DRUGS (3)
  1. NAFRURIL [Concomitant]
     Dosage: 1 DF DAILY
     Dates: start: 20110101
  2. UNIVAL [Concomitant]
     Indication: ABDOMINAL PAIN UPPER
     Dosage: 1 DF DAILY
     Dates: start: 20111101
  3. DIOVAN HCT [Suspect]
     Indication: HYPERTENSION
     Dosage: 1 TABLET (160/12.5 MG) DAILY
     Dates: start: 20110901

REACTIONS (6)
  - BACK PAIN [None]
  - MUSCLE STRAIN [None]
  - DEPRESSION [None]
  - ABDOMINAL PAIN UPPER [None]
  - MIGRAINE [None]
  - BRAIN HYPOXIA [None]
